FAERS Safety Report 4515991-8 (Version None)
Quarter: 2004Q4

REPORT INFORMATION
  Report Type: 
  Country: None (occurrence: None)
  Receive Date: 20041129
  Receipt Date: 20041112
  Transmission Date: 20050328
  Serious: Yes (Death)
  Sender: FDA-Public Use
  Company Number: 2004240135KR

PATIENT
  Age: 72 Year
  Sex: Male

DRUGS (1)
  1. LINEZOLID SOLUTION, STERILE (LINEZOLID) [Suspect]
     Indication: ENTEROBACTER PNEUMONIA
     Dosage: 300 ML, PARENTERAL
     Route: 051
     Dates: start: 20041002, end: 20041012

REACTIONS (3)
  - ACUTE MYOCARDIAL INFARCTION [None]
  - MYOCARDIAL INFARCTION [None]
  - THROMBOCYTOPENIA [None]
